FAERS Safety Report 21031456 (Version 1)
Quarter: 2022Q3

REPORT INFORMATION
  Report Type: Spontaneous
  Country: US (occurrence: US)
  Receive Date: 20220701
  Receipt Date: 20220701
  Transmission Date: 20221027
  Serious: No
  Sender: FDA-Public Use
  Company Number: US-GLAXOSMITHKLINE-US2022097714

PATIENT
  Age: 75 Year
  Sex: Female

DRUGS (1)
  1. ZEJULA [Suspect]
     Active Substance: NIRAPARIB
     Indication: Ovarian cancer
     Dosage: 200 MG
     Dates: start: 20220616

REACTIONS (3)
  - Nausea [Unknown]
  - Urinary tract infection [Unknown]
  - Retching [Unknown]

NARRATIVE: CASE EVENT DATE: 20220601
